FAERS Safety Report 13795300 (Version 2)
Quarter: 2017Q3

REPORT INFORMATION
  Report Type: Report from Study
  Country: US (occurrence: US)
  Receive Date: 20170726
  Receipt Date: 20170801
  Transmission Date: 20171127
  Serious: Yes (Hospitalization)
  Sender: FDA-Public Use
  Company Number: US-ACTELION-A-NJ2016-143712

PATIENT
  Age: 74 Year
  Sex: Male
  Weight: 95.24 kg

DRUGS (7)
  1. UPTRAVI [Suspect]
     Active Substance: SELEXIPAG
     Indication: PULMONARY ARTERIAL HYPERTENSION
     Dosage: 1400 MCG, BID
     Route: 048
     Dates: end: 201707
  2. REMODULIN [Concomitant]
     Active Substance: TREPROSTINIL
     Dosage: 12 NG/KG, PER MIN
     Route: 042
  3. REMODULIN [Concomitant]
     Active Substance: TREPROSTINIL
     Dosage: 8 NG/KG, PER MIN
     Route: 042
  4. REMODULIN [Concomitant]
     Active Substance: TREPROSTINIL
     Dosage: UNK
     Route: 042
  5. LETAIRIS [Concomitant]
     Active Substance: AMBRISENTAN
  6. UPTRAVI [Suspect]
     Active Substance: SELEXIPAG
     Dosage: 1600 MCG, BID
     Route: 048
     Dates: start: 20160609
  7. ADEMPAS [Concomitant]
     Active Substance: RIOCIGUAT

REACTIONS (6)
  - Lung disorder [Unknown]
  - Hypotension [Unknown]
  - Terminal state [Unknown]
  - Constipation [Unknown]
  - Fatigue [Unknown]
  - Productive cough [Unknown]
